FAERS Safety Report 22167979 (Version 1)
Quarter: 2023Q2

REPORT INFORMATION
  Report Type: Report from Study
  Country: CA (occurrence: CA)
  Receive Date: 20230403
  Receipt Date: 20230403
  Transmission Date: 20230722
  Serious: Yes (Other)
  Sender: FDA-Public Use
  Company Number: CA-JNJFOC-20230378971

PATIENT
  Age: 36 Year
  Sex: Female
  Weight: 64 kg

DRUGS (2)
  1. STELARA [Suspect]
     Active Substance: USTEKINUMAB
     Indication: Colitis ulcerative
     Dosage: ON 30-MAR-2023 THE PATIENT COMPLETED PARTIAL MAYO SURVEY AND RECEIVED 23RD INJECTION OF 90 MG OF STE
     Route: 058
     Dates: start: 20210408
  2. STELARA [Suspect]
     Active Substance: USTEKINUMAB

REACTIONS (1)
  - Haematochezia [Unknown]

NARRATIVE: CASE EVENT DATE: 20230329
